FAERS Safety Report 24066003 (Version 1)
Quarter: 2024Q3

REPORT INFORMATION
  Report Type: Spontaneous
  Country: US (occurrence: None)
  Receive Date: 20240708
  Receipt Date: 20240708
  Transmission Date: 20241017
  Serious: Yes (Disabling)
  Sender: Public
  Company Number: None

PATIENT
  Age: 72 Year
  Sex: Female
  Weight: 58.5 kg

DRUGS (9)
  1. PROLIA [Suspect]
     Active Substance: DENOSUMAB
     Indication: Osteoporosis
     Route: 058
  2. CALCIUM CITRATE [Concomitant]
     Active Substance: CALCIUM CITRATE
  3. VITAMIN D NOS [Concomitant]
     Active Substance: CHOLECALCIFEROL\ERGOCALCIFEROL
  4. DENOSUMAB [Concomitant]
     Active Substance: DENOSUMAB
  5. FAMOTIDINE [Concomitant]
     Active Substance: FAMOTIDINE
  6. FLUOXETINE [Concomitant]
     Active Substance: FLUOXETINE HYDROCHLORIDE
  7. LEVITHYROXINE [Concomitant]
  8. PROPRANOLOL [Concomitant]
     Active Substance: PROPRANOLOL HYDROCHLORIDE
  9. ROPINIROLE [Concomitant]
     Active Substance: ROPINIROLE

REACTIONS (5)
  - Arthralgia [None]
  - Groin pain [None]
  - Pain in extremity [None]
  - Pain in extremity [None]
  - Therapy cessation [None]

NARRATIVE: CASE EVENT DATE: 20220725
